FAERS Safety Report 21104488 (Version 1)
Quarter: 2022Q3

REPORT INFORMATION
  Report Type: Spontaneous
  Country: US (occurrence: None)
  Receive Date: 20220719
  Receipt Date: 20220719
  Transmission Date: 20221027
  Serious: Yes (Other)
  Sender: FDA-Public Use
  Company Number: None

PATIENT
  Age: 66 Year
  Sex: Female
  Weight: 80.1 kg

DRUGS (2)
  1. PAXLOVID [Suspect]
     Active Substance: NIRMATRELVIR\RITONAVIR
     Indication: COVID-19
  2. PAXLOVID [Concomitant]
     Active Substance: NIRMATRELVIR\RITONAVIR
     Dates: start: 20220714, end: 20220714

REACTIONS (14)
  - Hallucination, visual [None]
  - Confusional state [None]
  - Euphoric mood [None]
  - Dysgeusia [None]
  - Photosensitivity reaction [None]
  - Dry mouth [None]
  - Somnolence [None]
  - Somnolence [None]
  - Fumbling [None]
  - Memory impairment [None]
  - Neurological examination abnormal [None]
  - Amnesia [None]
  - Cough [None]
  - Urinary incontinence [None]

NARRATIVE: CASE EVENT DATE: 20220714
